FAERS Safety Report 16877123 (Version 1)
Quarter: 2019Q4

REPORT INFORMATION
  Report Type: Spontaneous
  Country: US (occurrence: US)
  Receive Date: 20191002
  Receipt Date: 20191002
  Transmission Date: 20200122
  Serious: Yes (Life-Threatening, Hospitalization, Other)
  Sender: FDA-Public Use
  Company Number: PHEH2019US040104

PATIENT
  Sex: Female

DRUGS (1)
  1. CHOLESTYRAMINE FOR ORAL SUSPENSION USP [Suspect]
     Active Substance: CHOLESTYRAMINE
     Indication: ABDOMINAL DISCOMFORT
     Dosage: UNK (4GM 378GM CAN)
     Route: 065

REACTIONS (4)
  - Suicidal ideation [Unknown]
  - Respiratory disorder [Unknown]
  - Feeling abnormal [Unknown]
  - Asthma [Unknown]
